FAERS Safety Report 24233633 (Version 1)
Quarter: 2024Q3

REPORT INFORMATION
  Report Type: Spontaneous
  Country: US (occurrence: None)
  Receive Date: 20240821
  Receipt Date: 20240821
  Transmission Date: 20241017
  Serious: Yes (Hospitalization)
  Sender: Public
  Company Number: None

PATIENT
  Sex: Female

DRUGS (1)
  1. GLATOPA [Suspect]
     Active Substance: GLATIRAMER ACETATE
     Indication: Multiple sclerosis
     Dosage: 40MG 3 TIMES A WEEK SQ
     Route: 058
     Dates: start: 202407

REACTIONS (4)
  - Feeling abnormal [None]
  - Dizziness [None]
  - Migraine [None]
  - Pain [None]
